FAERS Safety Report 4499160-6 (Version None)
Quarter: 2004Q4

REPORT INFORMATION
  Report Type: 
  Country: None (occurrence: None)
  Receive Date: 20041111
  Receipt Date: 20040513
  Transmission Date: 20050328
  Serious: Yes (Other)
  Sender: FDA-Public Use
  Company Number: US-ROCHE-367708

PATIENT
  Sex: Female

DRUGS (1)
  1. XELODA [Suspect]
     Indication: SIGNET-RING CELL CARCINOMA
     Route: 048
     Dates: start: 20020615

REACTIONS (9)
  - CELLULITIS [None]
  - ERYTHEMA NODOSUM [None]
  - FATIGUE [None]
  - GRANULOMA [None]
  - LYMPHADENOPATHY [None]
  - NASAL CONGESTION [None]
  - PALMAR-PLANTAR ERYTHRODYSAESTHESIA SYNDROME [None]
  - PULMONARY GRANULOMA [None]
  - SARCOIDOSIS [None]
